FAERS Safety Report 6865327-2 (Version None)
Quarter: 2010Q3

REPORT INFORMATION
  Report Type: 
  Country: None (occurrence: None)
  Receive Date: 20100721
  Receipt Date: 20080416
  Transmission Date: 20110219
  Serious: No
  Sender: FDA-Public Use
  Company Number: US-PFIZER INC-2008035555

PATIENT
  Sex: Female
  Weight: 66.818 kg

DRUGS (1)
  1. CHANTIX [Suspect]
     Indication: DEPRESSION
     Route: 048
     Dates: start: 20070702

REACTIONS (4)
  - CRYING [None]
  - FATIGUE [None]
  - MALAISE [None]
  - MEDICATION ERROR [None]
